FAERS Safety Report 12192046 (Version 1)
Quarter: 2016Q1

REPORT INFORMATION
  Report Type: Spontaneous
  Country: US (occurrence: US)
  Receive Date: 20160318
  Receipt Date: 20160318
  Transmission Date: 20160526
  Serious: No
  Sender: FDA-Public Use
  Company Number: US-TAKEDA-2016TUS004435

PATIENT
  Age: 54 Year
  Sex: Female
  Weight: 80.73 kg

DRUGS (1)
  1. CONTRAVE [Suspect]
     Active Substance: BUPROPION HYDROCHLORIDE\NALTREXONE HYDROCHLORIDE
     Indication: WEIGHT CONTROL
     Dosage: 8/90 MG, BID
     Route: 048
     Dates: start: 20160307

REACTIONS (2)
  - Drug prescribing error [Not Recovered/Not Resolved]
  - No adverse event [Unknown]
